FAERS Safety Report 11846803 (Version 1)
Quarter: 2015Q4

REPORT INFORMATION
  Report Type: Spontaneous
  Country: US (occurrence: US)
  Receive Date: 20151217
  Receipt Date: 20151217
  Transmission Date: 20160305
  Serious: No
  Sender: FDA-Public Use
  Company Number: US-ROCHE-1531100

PATIENT
  Sex: Male

DRUGS (1)
  1. TAMIFLU [Suspect]
     Active Substance: OSELTAMIVIR PHOSPHATE
     Indication: INFLUENZA
     Dosage: 1 TEASPOON OF 6MG/ML
     Route: 048
     Dates: start: 20150130

REACTIONS (2)
  - Somnolence [Not Recovered/Not Resolved]
  - Vomiting [Unknown]
